FAERS Safety Report 8379665-8 (Version None)
Quarter: 2012Q1

REPORT INFORMATION
  Report Type: 
  Country: None (occurrence: None)
  Receive Date: 20120323
  Receipt Date: 20110517
  Transmission Date: 20120608
  Serious: Yes (Other)
  Sender: FDA-Public Use
  Company Number: 163-21880-11033191

PATIENT
  Age: 88 Year
  Sex: Female
  Weight: 51.7 kg

DRUGS (3)
  1. REVLIMID [Suspect]
     Indication: MULTIPLE MYELOMA
     Dosage: 5 MG, 1 IN 1 D, PO, 5 MG, 3 WEEKS ON 1 WEEK OFF, PO
     Route: 048
     Dates: start: 20100218
  2. REVLIMID [Suspect]
  3. ARANESP [Concomitant]

REACTIONS (3)
  - OEDEMA PERIPHERAL [None]
  - RENAL FAILURE [None]
  - EPISTAXIS [None]
